APPROVED DRUG PRODUCT: ESCITALOPRAM OXALATE
Active Ingredient: ESCITALOPRAM OXALATE
Strength: EQ 5MG BASE
Dosage Form/Route: CAPSULE;ORAL
Application: A077660 | Product #001
Applicant: RISING PHARMA HOLDINGS INC
Approved: Jul 31, 2007 | RLD: No | RS: No | Type: DISCN